FAERS Safety Report 12803818 (Version 2)
Quarter: 2018Q1

REPORT INFORMATION
  Report Type: Spontaneous
  Country: JP (occurrence: JP)
  Receive Date: 20161003
  Receipt Date: 20180207
  Transmission Date: 20180508
  Serious: Yes (Life-Threatening, Hospitalization, Other)
  Sender: FDA-Public Use
  Company Number: JP-GILEAD-2016-0231927

PATIENT
  Age: 76 Year
  Sex: Female
  Weight: 54.8 kg

DRUGS (11)
  1. ASPARA POTASSIUM [Concomitant]
     Active Substance: POTASSIUM ASPARTATE
  2. NORVASC [Concomitant]
     Active Substance: AMLODIPINE BESYLATE
     Dosage: UNK
     Dates: start: 20160707
  3. RABEPRAZOLE [Concomitant]
     Active Substance: RABEPRAZOLE
  4. HARVONI [Suspect]
     Active Substance: LEDIPASVIR\SOFOSBUVIR
     Indication: HEPATITIS C
     Dosage: 1 DF, QD
     Route: 048
     Dates: start: 20160705, end: 2016
  5. TANATRIL [Concomitant]
     Active Substance: IMIDAPRIL
     Dosage: 5 MG, UNK
     Dates: end: 20160712
  6. RYTHMODAN                          /00271801/ [Concomitant]
     Active Substance: DISOPYRAMIDE
  7. PRAZAXA [Interacting]
     Active Substance: DABIGATRAN ETEXILATE MESYLATE
     Indication: ATRIAL FIBRILLATION
     Dosage: 110 MG, BID
     Route: 048
     Dates: start: 20150119, end: 20160912
  8. HARVONI [Interacting]
     Active Substance: LEDIPASVIR\SOFOSBUVIR
     Dosage: 1 DF, QD
     Route: 048
     Dates: start: 2016, end: 20160912
  9. NORVASC [Concomitant]
     Active Substance: AMLODIPINE BESYLATE
     Indication: HYPERTENSION
     Dosage: UNK
     Dates: end: 20160706
  10. GLYCYRON                           /00467202/ [Concomitant]
  11. REBAMIPIDE [Concomitant]
     Active Substance: REBAMIPIDE

REACTIONS (5)
  - Subarachnoid haemorrhage [Not Recovered/Not Resolved]
  - Labile blood pressure [Not Recovered/Not Resolved]
  - International normalised ratio increased [Recovering/Resolving]
  - Potentiating drug interaction [Not Recovered/Not Resolved]
  - Activated partial thromboplastin time prolonged [Recovering/Resolving]

NARRATIVE: CASE EVENT DATE: 20160705
